FAERS Safety Report 16533662 (Version 2)
Quarter: 2020Q4

REPORT INFORMATION
  Report Type: Other
  Country: CA (occurrence: CA)
  Receive Date: 20190704
  Receipt Date: 20201128
  Transmission Date: 20210113
  Serious: Yes (Hospitalization, Other)
  Sender: FDA-Public Use
  Company Number: CA-APOTEX-2019AP017359

PATIENT
  Age: 60 Year
  Sex: Female

DRUGS (8)
  1. DURVALUMAB. [Suspect]
     Active Substance: DURVALUMAB
     Indication: PANCREATIC CARCINOMA
     Dosage: 1500 MG, UNK, ONCE EVERY FOUR WEEKS
     Route: 041
  2. GEMCITABINE. [Suspect]
     Active Substance: GEMCITABINE
     Dosage: 1510 MILLIGRAM, Q.M.T.
     Route: 041
  3. TICILIMUMAB [Suspect]
     Active Substance: TREMELIMUMAB
     Indication: PANCREATIC CARCINOMA
     Dosage: 75 MG, UNK, ONCE EVERY FOUR WEEKS
     Route: 041
  4. GEMCITABINE. [Suspect]
     Active Substance: GEMCITABINE
     Indication: PANCREATIC CARCINOMA
     Dosage: 1510 MG, UNK, ONCE EVERY 4 WEEKS
     Route: 041
  5. ABRAXANE [Suspect]
     Active Substance: PACLITAXEL
     Dosage: 191 MILLIGRAM, Q.M.T.
     Route: 041
  6. ABRAXANE [Suspect]
     Active Substance: PACLITAXEL
     Indication: PANCREATIC CARCINOMA
     Dosage: 191 MG, UNK, ONCE EVERY FOUR WEEKS
     Route: 041
  7. DURVALUMAB. [Suspect]
     Active Substance: DURVALUMAB
     Dosage: 1500 MILLIGRAM, Q.M.T.
     Route: 041
  8. TICILIMUMAB [Suspect]
     Active Substance: TREMELIMUMAB
     Dosage: 75 MILLIGRAM, Q.M.T.
     Route: 041

REACTIONS (3)
  - Product use issue [Recovered/Resolved with Sequelae]
  - Off label use [Recovered/Resolved with Sequelae]
  - Biliary tract infection [Recovered/Resolved with Sequelae]
